FAERS Safety Report 5725503-9 (Version None)
Quarter: 2008Q2

REPORT INFORMATION
  Report Type: 
  Country: None (occurrence: None)
  Receive Date: 20080501
  Receipt Date: 20080424
  Transmission Date: 20081010
  Serious: Yes (Other)
  Sender: FDA-Public Use
  Company Number: DE-JNJFOC-20080406481

PATIENT
  Sex: Male

DRUGS (5)
  1. RISPERDAL [Suspect]
     Indication: DRUG USE FOR UNKNOWN INDICATION
     Route: 048
  2. RISPERDAL CONSTA [Suspect]
     Route: 030
  3. RISPERDAL CONSTA [Suspect]
     Indication: DRUG USE FOR UNKNOWN INDICATION
     Route: 030
  4. HYPNOREX RETARD [Concomitant]
     Route: 048
  5. CIATYL-Z [Concomitant]
     Route: 065

REACTIONS (3)
  - DIABETES MELLITUS [None]
  - ERECTILE DYSFUNCTION [None]
  - WEIGHT INCREASED [None]
